FAERS Safety Report 22624510 (Version 1)
Quarter: 2023Q2

REPORT INFORMATION
  Report Type: Spontaneous
  Country: US (occurrence: None)
  Receive Date: 20230616
  Receipt Date: 20230616
  Transmission Date: 20230721
  Serious: Yes (Death, Life-Threatening, Hospitalization)
  Sender: FDA-Public Use
  Company Number: None

PATIENT
  Age: 75 Year
  Sex: Male

DRUGS (1)
  1. PIRFENIDONE [Suspect]
     Active Substance: PIRFENIDONE
     Indication: Idiopathic pulmonary fibrosis
     Dosage: FREQUENCY : DAILY;?
     Route: 048
     Dates: start: 20221114, end: 20230530

REACTIONS (10)
  - Interstitial lung disease [None]
  - Pneumonia [None]
  - Bronchitis [None]
  - Acute respiratory failure [None]
  - Sepsis [None]
  - Tachypnoea [None]
  - Leukocytosis [None]
  - Tachycardia [None]
  - Sleep disorder [None]
  - Gastrooesophageal reflux disease [None]

NARRATIVE: CASE EVENT DATE: 20230529
